FAERS Safety Report 7717421-1 (Version None)
Quarter: 2011Q3

REPORT INFORMATION
  Report Type: 
  Country: None (occurrence: None)
  Receive Date: 20110824
  Receipt Date: 20110816
  Transmission Date: 20111222
  Serious: Yes (Other)
  Sender: FDA-Public Use
  Company Number: 201110932

PATIENT
  Sex: Female

DRUGS (1)
  1. LIORESAL [Suspect]
     Indication: MUSCLE SPASTICITY
     Dosage: MCG, DAILY, INTRATHECAL
     Route: 037

REACTIONS (15)
  - RENAL DISORDER [None]
  - TREMOR [None]
  - ABDOMINAL DISCOMFORT [None]
  - CATHETER SITE RELATED REACTION [None]
  - PARAESTHESIA [None]
  - WEIGHT INCREASED [None]
  - GALLBLADDER DISORDER [None]
  - PAIN [None]
  - OEDEMA [None]
  - DRUG WITHDRAWAL SYNDROME [None]
  - THYROID DISORDER [None]
  - GENERAL PHYSICAL HEALTH DETERIORATION [None]
  - FLUID RETENTION [None]
  - LABORATORY TEST ABNORMAL [None]
  - CARDIAC DISORDER [None]
